FAERS Safety Report 25395667 (Version 1)
Quarter: 2025Q2

REPORT INFORMATION
  Report Type: Spontaneous
  Country: US (occurrence: None)
  Receive Date: 20250603
  Receipt Date: 20250603
  Transmission Date: 20250717
  Serious: Yes (Life-Threatening, Disabling)
  Sender: FDA-CTU
  Company Number: None

PATIENT
  Age: 47 Year
  Sex: Female
  Weight: 94.5 kg

DRUGS (1)
  1. PROZAC [Suspect]
     Active Substance: FLUOXETINE HYDROCHLORIDE

REACTIONS (7)
  - Withdrawal syndrome [None]
  - Emotional distress [None]
  - Suicidal ideation [None]
  - Gluten sensitivity [None]
  - Gastrointestinal disorder [None]
  - Rash [None]
  - Product communication issue [None]
